FAERS Safety Report 24109914 (Version 1)
Quarter: 2024Q3

REPORT INFORMATION
  Report Type: Spontaneous
  Country: US (occurrence: US)
  Receive Date: 20240718
  Receipt Date: 20240718
  Transmission Date: 20241017
  Serious: No
  Sender: AMGEN
  Company Number: US-AMGEN-USASP2024139719

PATIENT

DRUGS (2)
  1. KYPROLIS [Suspect]
     Active Substance: CARFILZOMIB
     Indication: Product used for unknown indication
     Dosage: 85 MILLIGRAM 60 MG X 1 VIAL
     Route: 065
  2. KYPROLIS [Suspect]
     Active Substance: CARFILZOMIB
     Dosage: 85 MILLIGRAM  30 MG X 1 VIAL
     Route: 065

REACTIONS (1)
  - Therapy change [Unknown]

NARRATIVE: CASE EVENT DATE: 20240703
